FAERS Safety Report 5164137-4 (Version None)
Quarter: 2006Q4

REPORT INFORMATION
  Report Type: 
  Country: None (occurrence: None)
  Receive Date: 20061124
  Receipt Date: 20061120
  Transmission Date: 20070319
  Serious: Yes (Death)
  Sender: FDA-Public Use
  Company Number: 163-20785-06110550

PATIENT
  Age: 80 Year
  Sex: Male

DRUGS (1)
  1. THALOMID [Suspect]
     Indication: MULTIPLE MYELOMA
     Dosage: 300 MG, 6 IN 1 D, ORAL
     Route: 048
     Dates: start: 20020919

REACTIONS (1)
  - RENAL FAILURE CHRONIC [None]
